FAERS Safety Report 24807285 (Version 2)
Quarter: 2025Q1

REPORT INFORMATION
  Report Type: Spontaneous
  Country: US (occurrence: US)
  Receive Date: 20250105
  Receipt Date: 20250203
  Transmission Date: 20250408
  Serious: Yes (Life-Threatening, Hospitalization, Other)
  Sender: ALEXION PHARMACEUTICALS
  Company Number: US-AstraZeneca-CH-00775101AP

PATIENT

DRUGS (1)
  1. BYDUREON BCISE [Suspect]
     Active Substance: EXENATIDE
     Route: 065

REACTIONS (7)
  - Cardiac arrest [Unknown]
  - Sepsis [Unknown]
  - Infection [Unknown]
  - Pericardial effusion [Unknown]
  - General physical health deterioration [Unknown]
  - Product dose omission issue [Unknown]
  - Device leakage [Unknown]
